FAERS Safety Report 10526167 (Version 1)
Quarter: 2014Q4

REPORT INFORMATION
  Report Type: Spontaneous
  Country: US (occurrence: US)
  Receive Date: 20141017
  Receipt Date: 20141017
  Transmission Date: 20150528
  Serious: No
  Sender: FDA-Public Use
  Company Number: US-009507513-1410USA006954

PATIENT
  Sex: Male

DRUGS (1)
  1. LOTRIMIN [Suspect]
     Active Substance: CLOTRIMAZOLE
     Indication: PRURITUS
     Dosage: UNK, UNKNOWN
     Route: 061
     Dates: start: 201308

REACTIONS (1)
  - Chemical burn of skin [Unknown]

NARRATIVE: CASE EVENT DATE: 2013
